FAERS Safety Report 4754885-X (Version None)
Quarter: 2005Q3

REPORT INFORMATION
  Report Type: 
  Country: None (occurrence: None)
  Receive Date: 20050826
  Receipt Date: 20050826
  Transmission Date: 20060218
  Serious: Yes (Hospitalization)
  Sender: FDA-Public Use
  Company Number: None

PATIENT
  Age: 65 Year
  Sex: Male
  Weight: 74 kg

DRUGS (9)
  1. IRINOTECAN [Suspect]
     Indication: COLON CANCER
     Dates: start: 20041123
  2. FLUOROURACIL [Suspect]
     Indication: COLON CANCER
     Dates: start: 20041123
  3. FOLINIC ACID [Suspect]
     Indication: COLON CANCER
     Dosage: 300 MG
     Dates: start: 20041123
  4. ATROPINE SULFATE [Concomitant]
  5. A [Concomitant]
  6. OPIUM TINCTURE [Concomitant]
  7. MCP (METOCLOPRAMIDE HYDROCHLORIDE) [Concomitant]
  8. MCP (METOCLOPRAMIDE HYDROCHLORIDE) [Concomitant]
  9. KALITRANS (POTASSIUM BICARBONATE) [Concomitant]

REACTIONS (9)
  - ABNORMAL FAECES [None]
  - BLOOD CREATININE INCREASED [None]
  - COAGULOPATHY [None]
  - CONDITION AGGRAVATED [None]
  - DIARRHOEA [None]
  - HAEMATOMA [None]
  - NAUSEA [None]
  - RENAL FAILURE [None]
  - VOMITING [None]
